FAERS Safety Report 10975053 (Version 1)
Quarter: 2015Q1

REPORT INFORMATION
  Report Type: Spontaneous
  Country: US (occurrence: None)
  Receive Date: 20150226
  Receipt Date: 20150226
  Transmission Date: 20150721
  Serious: No
  Sender: FDA-Public Use
  Company Number: TPA2010A03434

PATIENT
  Age: 62 Year
  Sex: Male
  Weight: 92.99 kg

DRUGS (5)
  1. GLYBURIDE (GLIBENCLAMIDE) [Concomitant]
     Active Substance: GLYBURIDE
  2. LASIX [Concomitant]
     Active Substance: FUROSEMIDE
  3. ULORIC [Suspect]
     Active Substance: FEBUXOSTAT
     Indication: GOUT
     Route: 048
     Dates: start: 20100203
  4. MONOPRIL (FOSINOPRIL SODIUM) [Concomitant]
  5. TUMS [Concomitant]
     Active Substance: CALCIUM CARBONATE

REACTIONS (2)
  - Drug ineffective [None]
  - Blood uric acid increased [None]
